FAERS Safety Report 20795842 (Version 1)
Quarter: 2022Q2

REPORT INFORMATION
  Report Type: Report from Study
  Country: CA (occurrence: CA)
  Receive Date: 20220506
  Receipt Date: 20220506
  Transmission Date: 20220721
  Serious: Yes (Other)
  Sender: FDA-Public Use
  Company Number: CA-OTSUKA-2022_025853

PATIENT
  Sex: Female

DRUGS (1)
  1. ARIPIPRAZOLE [Suspect]
     Active Substance: ARIPIPRAZOLE
     Indication: Product used for unknown indication
     Dosage: 300 Q 4 WEEKS
     Route: 030
     Dates: start: 20220202

REACTIONS (2)
  - Dementia of the Alzheimer^s type, with delusions [Not Recovered/Not Resolved]
  - Underdose [Unknown]
